FAERS Safety Report 15263950 (Version 3)
Quarter: 2018Q4

REPORT INFORMATION
  Report Type: Report from Study
  Country: US (occurrence: US)
  Receive Date: 20180810
  Receipt Date: 20181210
  Transmission Date: 20190204
  Serious: No
  Sender: FDA-Public Use
  Company Number: US-SA-2018SA218214

PATIENT
  Age: 67 Year
  Sex: Female

DRUGS (5)
  1. DUPILUMAB [Suspect]
     Active Substance: DUPILUMAB
     Indication: ECZEMA
  2. DUPILUMAB [Suspect]
     Active Substance: DUPILUMAB
     Indication: DERMATITIS ATOPIC
     Dosage: 600 MG, 1X
     Route: 058
     Dates: start: 20180611, end: 20180611
  3. DUPILUMAB [Suspect]
     Active Substance: DUPILUMAB
     Indication: PRURITUS
     Dosage: 300 UNK, QOW
     Route: 058
     Dates: start: 201806
  4. CYCLOSPORINE. [Concomitant]
     Active Substance: CYCLOSPORINE
     Dosage: UNK UNK, BID
  5. DUPILUMAB [Suspect]
     Active Substance: DUPILUMAB
     Indication: PSORIASIS

REACTIONS (5)
  - Pruritus [Not Recovered/Not Resolved]
  - Visual impairment [Recovered/Resolved]
  - Alopecia [Not Recovered/Not Resolved]
  - Vision blurred [Recovered/Resolved]
  - Rash [Not Recovered/Not Resolved]

NARRATIVE: CASE EVENT DATE: 201806
